FAERS Safety Report 8297773-7 (Version None)
Quarter: 2012Q2

REPORT INFORMATION
  Report Type: 
  Country: None (occurrence: None)
  Receive Date: 20120419
  Receipt Date: 20120413
  Transmission Date: 20120825
  Serious: No
  Sender: FDA-Public Use
  Company Number: US-PFIZER INC-2012006369

PATIENT
  Sex: Male
  Weight: 120 kg

DRUGS (6)
  1. OMNICEF [Concomitant]
     Dosage: 600 MG, 2X/DAY
  2. RIFABUTIN [Concomitant]
     Dosage: 150 MG, 2X/DAY
  3. SEPTRA [Suspect]
     Indication: INFECTION
     Dosage: 160/800 MG TWO TABLETS, 2X/DAY
     Route: 048
     Dates: start: 20110801
  4. COUMADIN [Concomitant]
     Dosage: UNK
  5. MYCOBUTIN [Concomitant]
     Dosage: UNK
  6. SEPTRA DS [Suspect]
     Dosage: 2 TAB BID (TAKES IT CYCLICALLY ONE WEEK EVERY MONTH)
     Route: 048
     Dates: start: 20110901

REACTIONS (5)
  - OEDEMA PERIPHERAL [None]
  - PAIN IN EXTREMITY [None]
  - UNEVALUABLE EVENT [None]
  - MOVEMENT DISORDER [None]
  - FALL [None]
